FAERS Safety Report 17563666 (Version 3)
Quarter: 2020Q3

REPORT INFORMATION
  Report Type: Report from Study
  Country: US (occurrence: US)
  Receive Date: 20200320
  Receipt Date: 20200723
  Transmission Date: 20201102
  Serious: No
  Sender: FDA-Public Use
  Company Number: NVSC2020US078026

PATIENT
  Sex: Female

DRUGS (5)
  1. COSENTYX [Suspect]
     Active Substance: SECUKINUMAB
     Indication: PSORIASIS
     Route: 058
  2. HYDROCHLOROTHIAZIDE. [Suspect]
     Active Substance: HYDROCHLOROTHIAZIDE
     Indication: PRODUCT USED FOR UNKNOWN INDICATION
     Dosage: 25 MG, QD
     Route: 065
  3. COSENTYX [Suspect]
     Active Substance: SECUKINUMAB
     Indication: PSORIASIS
     Dosage: 300 MG, Q4W
     Route: 058
  4. HYDRALAZINE [Suspect]
     Active Substance: HYDRALAZINE HYDROCHLORIDE
     Indication: HYPERTENSION
     Dosage: UNK (TOOK ABOUT 1 AND HALF WEEK)
     Route: 048
  5. COSENTYX [Suspect]
     Active Substance: SECUKINUMAB
     Indication: DERMATOPHYTOSIS OF NAIL
     Dosage: 300 MG, QMO
     Route: 058
     Dates: start: 202003

REACTIONS (11)
  - Dizziness [Unknown]
  - Arthritis [Unknown]
  - Joint swelling [Unknown]
  - Pruritus [Unknown]
  - Skin exfoliation [Unknown]
  - Abdominal pain upper [Unknown]
  - Headache [Unknown]
  - Psoriasis [Unknown]
  - Arthralgia [Unknown]
  - Hypertension [Unknown]
  - Skin fissures [Unknown]
